FAERS Safety Report 6153457-2 (Version None)
Quarter: 2009Q2

REPORT INFORMATION
  Report Type: 
  Country: None (occurrence: None)
  Receive Date: 20090413
  Receipt Date: 20090209
  Transmission Date: 20091009
  Serious: Yes (Death, Hospitalization)
  Sender: FDA-Public Use
  Company Number: US-WYE-H03638608

PATIENT
  Sex: Male
  Weight: 104 kg

DRUGS (8)
  1. TEMSIROLIMUS [Suspect]
     Indication: MULTIPLE MYELOMA
     Route: 042
     Dates: start: 20080325, end: 20080408
  2. NEURONTIN [Concomitant]
     Dosage: UNKNOWN
     Route: 048
  3. ADVAIR HFA [Concomitant]
     Dosage: UNKNOWN
     Route: 055
  4. OXYCODONE HCL [Concomitant]
     Dosage: UNKNOWN
     Route: 048
  5. AMOXICILLIN [Concomitant]
     Dosage: UNKNOWN
     Route: 048
  6. VALTREX [Concomitant]
     Dosage: UNKNOWN
     Route: 048
  7. BORTEZOMIB [Suspect]
     Indication: MULTIPLE MYELOMA
     Route: 042
     Dates: start: 20080325, end: 20080408
  8. METOPROLOL TARTRATE [Concomitant]
     Dosage: UNKNOWN
     Route: 048

REACTIONS (6)
  - ACUTE RESPIRATORY FAILURE [None]
  - MYOCARDIAL INFARCTION [None]
  - NEUTROPENIC SEPSIS [None]
  - PLEURAL EFFUSION [None]
  - PNEUMONIA [None]
  - SEPTIC SHOCK [None]
